FAERS Safety Report 22290513 (Version 3)
Quarter: 2023Q2

REPORT INFORMATION
  Report Type: Spontaneous
  Country: US (occurrence: US)
  Receive Date: 20230505
  Receipt Date: 20230530
  Transmission Date: 20230721
  Serious: Yes (Life-Threatening, Hospitalization)
  Sender: FDA-Public Use
  Company Number: US-Vifor (International) Inc.-VIT-2023-03201

PATIENT
  Age: 70 Year
  Sex: Male
  Weight: 74 kg

DRUGS (1)
  1. MIRCERA [Suspect]
     Active Substance: METHOXY POLYETHYLENE GLYCOL-EPOETIN BETA
     Indication: Nephrogenic anaemia
     Dosage: ONCE
     Route: 041
     Dates: start: 20230418, end: 20230418

REACTIONS (6)
  - Hypersensitivity [Recovered/Resolved]
  - Unresponsive to stimuli [Recovered/Resolved]
  - Eye movement disorder [Recovered/Resolved]
  - Pulse absent [Recovered/Resolved]
  - Tachypnoea [Recovered/Resolved]
  - Blood pressure increased [Recovered/Resolved]

NARRATIVE: CASE EVENT DATE: 20230418
